FAERS Safety Report 7376838-8 (Version None)
Quarter: 2011Q1

REPORT INFORMATION
  Report Type: 
  Country: None (occurrence: None)
  Receive Date: 20110325
  Receipt Date: 20110322
  Transmission Date: 20110831
  Serious: Yes (Hospitalization)
  Sender: FDA-Public Use
  Company Number: FR-MERCK-1103FRA00123

PATIENT
  Age: 58 Year
  Sex: Female

DRUGS (12)
  1. LIRAGLUTIDE [Suspect]
     Indication: INSULIN-REQUIRING TYPE 2 DIABETES MELLITUS
     Route: 058
     Dates: start: 20100824, end: 20100905
  2. GLYBURIDE [Concomitant]
     Route: 065
     Dates: end: 20100823
  3. RISEDRONATE SODIUM [Concomitant]
     Route: 048
     Dates: end: 20100911
  4. INSULIN GLARGINE [Concomitant]
     Indication: INSULIN-REQUIRING TYPE 2 DIABETES MELLITUS
     Route: 058
     Dates: start: 20100906
  5. METFORMIN HYDROCHLORIDE AND ROSIGLITAZONE MALEATE [Concomitant]
     Route: 065
     Dates: end: 20100823
  6. INSULIN GLARGINE [Concomitant]
     Route: 065
     Dates: end: 20100823
  7. HYDROCHLOROTHIAZIDE AND IRBESARTAN [Concomitant]
     Indication: HYPERTENSION
     Route: 048
     Dates: end: 20100911
  8. PREGABALIN [Concomitant]
     Indication: DIABETIC NEUROPATHY
     Route: 048
     Dates: start: 20100501
  9. FENOFIBRATE [Concomitant]
     Indication: DYSLIPIDAEMIA
     Route: 048
     Dates: end: 20100911
  10. JANUMET [Suspect]
     Indication: INSULIN-REQUIRING TYPE 2 DIABETES MELLITUS
     Route: 048
     Dates: start: 20100906, end: 20100911
  11. METFORMIN [Concomitant]
     Indication: INSULIN-REQUIRING TYPE 2 DIABETES MELLITUS
     Route: 048
     Dates: start: 20100824, end: 20100911
  12. LEVOTHYROXINE SODIUM [Concomitant]
     Indication: HYPOTHYROIDISM
     Route: 048

REACTIONS (2)
  - LIPASE INCREASED [None]
  - BLOOD AMYLASE INCREASED [None]
